FAERS Safety Report 7436807-6 (Version None)
Quarter: 2011Q2

REPORT INFORMATION
  Report Type: 
  Country: None (occurrence: None)
  Receive Date: 20110426
  Receipt Date: 20100909
  Transmission Date: 20111010
  Serious: Yes (Hospitalization, Other)
  Sender: FDA-Public Use
  Company Number: US-BAYER-200942402NA

PATIENT
  Age: 40 Year
  Sex: Female
  Weight: 126.98 kg

DRUGS (11)
  1. PROTONIX [Concomitant]
     Dosage: 40 MG, OM
  2. ZOLOFT [Concomitant]
     Dosage: UNK UNK, HS
  3. YAZ [Suspect]
     Indication: ORAL CONTRACEPTION
  4. YAZ [Suspect]
     Indication: ACNE
  5. KLONOPIN [Concomitant]
     Dosage: 0.5 MG, OM
  6. SEROQUEL [Concomitant]
     Dosage: 50 MG, OM
  7. SEROQUEL [Concomitant]
     Dosage: 100 MG, HS
  8. SERTRALINE [Concomitant]
     Dosage: 200 MG, OM
  9. KLONOPIN [Concomitant]
     Dosage: 1 MG, HS
  10. LORTAB [Concomitant]
     Indication: PAIN
     Dosage: 7.5 MG, PRN
  11. PHENERGAN HCL [Concomitant]
     Indication: NAUSEA
     Dosage: UNK UNK, PRN
     Route: 048

REACTIONS (12)
  - PULMONARY EMBOLISM [None]
  - CHEST PAIN [None]
  - PAIN [None]
  - NAUSEA [None]
  - ABDOMINAL PAIN UPPER [None]
  - CHOLECYSTITIS [None]
  - HYPOAESTHESIA [None]
  - VOMITING [None]
  - GALLBLADDER DISORDER [None]
  - DIARRHOEA [None]
  - GASTROOESOPHAGEAL REFLUX DISEASE [None]
  - SWELLING [None]
